FAERS Safety Report 4705211-3 (Version None)
Quarter: 2005Q2

REPORT INFORMATION
  Report Type: 
  Country: None (occurrence: None)
  Receive Date: 20050630
  Receipt Date: 20050630
  Transmission Date: 20051028
  Serious: Yes (Other)
  Sender: FDA-Public Use
  Company Number: None

PATIENT
  Age: 74 Year
  Sex: Male
  Weight: 95.5 kg

DRUGS (1)
  1. MEGESTROL [Suspect]
     Indication: BASAL CELL CARCINOMA
     Dosage: 40 MG PO
     Route: 048
     Dates: start: 20050414, end: 20050504

REACTIONS (1)
  - BLOOD GLUCOSE INCREASED [None]
